FAERS Safety Report 4361454-2 (Version None)
Quarter: 2004Q2

REPORT INFORMATION
  Report Type: 
  Country: None (occurrence: None)
  Receive Date: 20040521
  Receipt Date: 20030617
  Transmission Date: 20050107
  Serious: No
  Sender: FDA-Public Use
  Company Number: US-GLAXOSMITHKLINE-A0412823A

PATIENT
  Age: 60 Year
  Sex: Female

DRUGS (6)
  1. ZYBAN [Suspect]
     Dosage: 150MG TWICE PER DAY
     Route: 048
     Dates: start: 20030611
  2. LISINOPRIL [Concomitant]
  3. ZYRTEC [Concomitant]
  4. ALBUTEROL [Concomitant]
  5. COMBIVENT [Concomitant]
  6. FLOVENT [Concomitant]

REACTIONS (1)
  - PARAESTHESIA [None]
